FAERS Safety Report 9558494 (Version 2)
Quarter: 2013Q3

REPORT INFORMATION
  Report Type: Spontaneous
  Country: US (occurrence: US)
  Receive Date: 20130926
  Receipt Date: 20130926
  Transmission Date: 20140515
  Serious: No
  Sender: FDA-Public Use
  Company Number: US-BIOGENIDEC-2013BI043996

PATIENT
  Age: 18 Year
  Sex: Female

DRUGS (5)
  1. TECFIDERA [Suspect]
     Indication: MULTIPLE SCLEROSIS
     Route: 048
     Dates: start: 20130510, end: 20130516
  2. TECFIDERA [Suspect]
     Indication: MULTIPLE SCLEROSIS
     Route: 048
     Dates: start: 20130517
  3. IBUPROFEN [Concomitant]
  4. VITAMIN D3 [Concomitant]
  5. VITAMIN B-12 [Concomitant]

REACTIONS (5)
  - Flushing [Recovered/Resolved]
  - Rash [Recovered/Resolved]
  - Burning sensation [Not Recovered/Not Resolved]
  - Abdominal pain [Not Recovered/Not Resolved]
  - Pruritus [Recovered/Resolved]
